FAERS Safety Report 18877499 (Version 1)
Quarter: 2021Q1

REPORT INFORMATION
  Report Type: Spontaneous
  Country: US (occurrence: US)
  Receive Date: 20210210
  Receipt Date: 20210210
  Transmission Date: 20210420
  Serious: No
  Sender: FDA-Public Use
  Company Number: None

PATIENT
  Age: 34 Year
  Sex: Female
  Weight: 103.05 kg

DRUGS (5)
  1. IBUPROFEN PRN [Concomitant]
  2. VITAMIN D3 5000 IU [Concomitant]
  3. FAMOTIDINE 20MG TABLET [Concomitant]
  4. WELLBUTRIN XL [Suspect]
     Active Substance: BUPROPION HYDROCHLORIDE
     Indication: DEPRESSION
     Dosage: ?          QUANTITY:1 TABLET(S);?
     Route: 048
     Dates: start: 20210202, end: 20210204
  5. VITAMIN B12  MCG SUBLINGUAL [Concomitant]

REACTIONS (11)
  - Swollen tongue [None]
  - Dry mouth [None]
  - Asthenia [None]
  - Influenza like illness [None]
  - Dry eye [None]
  - Taste disorder [None]
  - Dysphonia [None]
  - Dry throat [None]
  - Tongue disorder [None]
  - Product substitution issue [None]
  - Tongue erythema [None]

NARRATIVE: CASE EVENT DATE: 20210202
